FAERS Safety Report 10351343 (Version 1)
Quarter: 2014Q3

REPORT INFORMATION
  Report Type: Spontaneous
  Country: GB (occurrence: GB)
  Receive Date: 20140730
  Receipt Date: 20140730
  Transmission Date: 20150326
  Serious: Yes (Hospitalization)
  Sender: FDA-Public Use
  Company Number: GB-BANPHARM-20142897

PATIENT
  Age: 44 Year

DRUGS (3)
  1. IBUPROFEN UNKNOWN PRODUCT [Suspect]
     Active Substance: IBUPROFEN
     Dosage: 30-40 TABLETS, QD,
     Route: 048
  2. CITALOPRAM [Concomitant]
     Active Substance: CITALOPRAM HYDROBROMIDE
  3. PARACETHAMOL [Concomitant]

REACTIONS (3)
  - Renal tubular acidosis [Recovering/Resolving]
  - Nephrocalcinosis [Not Recovered/Not Resolved]
  - Overdose [Unknown]
